FAERS Safety Report 9293872 (Version 1)
Quarter: 2013Q1

REPORT INFORMATION
  Report Type: Spontaneous
  Country: US (occurrence: None)
  Receive Date: 20121217
  Receipt Date: 20121217
  Transmission Date: 20140127
  Serious: Yes (Hospitalization)
  Sender: FDA-Public Use
  Company Number: 1000039217

PATIENT
  Age: 75 Year
  Sex: Female
  Weight: 53 kg

DRUGS (4)
  1. NAMENDA [Suspect]
     Indication: DEMENTIA ALZHEIMER^S TYPE
     Dosage: 5 MG, 1 IN 1 D
     Route: 048
     Dates: start: 20100908
  2. NAMENDA [Suspect]
     Dosage: 5 MG, 2 IN 1 D
     Route: 048
     Dates: end: 2012
  3. ARICEPT [Concomitant]
  4. DALIRESP [Concomitant]

REACTIONS (1)
  - Renal failure [None]
